FAERS Safety Report 20510344 (Version 1)
Quarter: 2022Q1

REPORT INFORMATION
  Report Type: Spontaneous
  Country: CN (occurrence: CN)
  Receive Date: 20220224
  Receipt Date: 20220224
  Transmission Date: 20220423
  Serious: Yes (Life-Threatening, Hospitalization)
  Sender: FDA-Public Use
  Company Number: CN-ABBVIE-22K-035-4290178-00

PATIENT
  Age: 70 Year
  Sex: Male

DRUGS (3)
  1. VALPROATE SODIUM [Suspect]
     Active Substance: VALPROATE SODIUM
     Indication: Diffuse axonal injury
     Route: 065
     Dates: start: 20190530, end: 20190606
  2. VALPROIC ACID [Suspect]
     Active Substance: VALPROIC ACID
     Indication: Diffuse axonal injury
     Route: 065
     Dates: start: 20190516, end: 20190523
  3. VALPROIC ACID [Suspect]
     Active Substance: VALPROIC ACID
     Route: 065
     Dates: start: 20190523, end: 20190530

REACTIONS (1)
  - Liver injury [Recovering/Resolving]

NARRATIVE: CASE EVENT DATE: 20190607
